FAERS Safety Report 4564682-6 (Version None)
Quarter: 2005Q1

REPORT INFORMATION
  Report Type: 
  Country: None (occurrence: None)
  Receive Date: 20050126
  Receipt Date: 20050106
  Transmission Date: 20050727
  Serious: Yes (Hospitalization)
  Sender: FDA-Public Use
  Company Number: FR_050105545

PATIENT
  Age: 42 Year
  Sex: Male

DRUGS (1)
  1. ALIMTA [Suspect]
     Indication: LUNG ADENOCARCINOMA
     Dosage: 850 MG OTHER
     Dates: start: 20041214

REACTIONS (2)
  - AGRANULOCYTOSIS [None]
  - PYREXIA [None]
